FAERS Safety Report 6657630-6 (Version None)
Quarter: 2010Q1

REPORT INFORMATION
  Report Type: 
  Country: None (occurrence: None)
  Receive Date: 20100330
  Receipt Date: 20100322
  Transmission Date: 20100710
  Serious: Yes (Other)
  Sender: FDA-Public Use
  Company Number: US-PFIZER INC-2010037291

PATIENT
  Sex: Male

DRUGS (1)
  1. DETROL [Suspect]

REACTIONS (2)
  - HALLUCINATION [None]
  - ILLUSION [None]
